FAERS Safety Report 8511145-9 (Version None)
Quarter: 2012Q3

REPORT INFORMATION
  Report Type: 
  Country: None (occurrence: None)
  Receive Date: 20120716
  Receipt Date: 20120712
  Transmission Date: 20120928
  Serious: Yes (Other)
  Sender: FDA-Public Use
  Company Number: CA-TEVA-348190USA

PATIENT
  Age: 59 Year
  Sex: Male
  Weight: 77 kg

DRUGS (3)
  1. CLONAZEPAM [Suspect]
     Dosage: .5 DOSAGE FORMS;
     Route: 048
  2. AZOPT [Suspect]
     Dosage: 2 GTT;
     Route: 047
  3. TRAVATAN Z [Suspect]
     Dosage: 1 GTT;
     Route: 047

REACTIONS (2)
  - CONDITION AGGRAVATED [None]
  - DEAFNESS [None]
